FAERS Safety Report 7645100-8 (Version None)
Quarter: 2011Q3

REPORT INFORMATION
  Report Type: 
  Country: None (occurrence: None)
  Receive Date: 20110729
  Receipt Date: 20110721
  Transmission Date: 20111222
  Serious: Yes (Other)
  Sender: FDA-Public Use
  Company Number: PHHY2011BR66428

PATIENT
  Age: 88 Year
  Sex: Female

DRUGS (3)
  1. ALENDRONATE SODIUM [Suspect]
     Dosage: UNK UKN, UNK
     Dates: end: 20100801
  2. MIACALCIN [Suspect]
     Dosage: 200 UI
     Dates: start: 20100801
  3. MIACALCIN [Suspect]
     Indication: FEMUR FRACTURE
     Dosage: 200 UI

REACTIONS (3)
  - LUMBAR VERTEBRAL FRACTURE [None]
  - PATHOLOGICAL FRACTURE [None]
  - OSTEOPOROSIS [None]
